FAERS Safety Report 11340764 (Version 1)
Quarter: 2015Q3

REPORT INFORMATION
  Report Type: Spontaneous
  Country: US (occurrence: US)
  Receive Date: 20150805
  Receipt Date: 20150805
  Transmission Date: 20151125
  Serious: No
  Sender: FDA-Public Use
  Company Number: US-PFIZER INC-2015258546

PATIENT
  Age: 49 Year
  Sex: Male

DRUGS (2)
  1. SOMAVERT [Suspect]
     Active Substance: PEGVISOMANT
     Dosage: 10 MG, DAILY
     Dates: start: 20130901
  2. CABERGOLINE. [Suspect]
     Active Substance: CABERGOLINE
     Dosage: UNK, 2X/WEEK

REACTIONS (2)
  - Dizziness [Unknown]
  - Vertigo [Unknown]
